FAERS Safety Report 24017822 (Version 1)
Quarter: 2024Q2

REPORT INFORMATION
  Report Type: Report from Study
  Country: EG (occurrence: EG)
  Receive Date: 20240627
  Receipt Date: 20240627
  Transmission Date: 20240716
  Serious: Yes (Disabling)
  Sender: FDA-Public Use
  Company Number: EG-SANDOZ-SDZ2024EG051441

PATIENT
  Age: 6 Year
  Sex: Female
  Weight: 16.5 kg

DRUGS (3)
  1. OMNITROPE [Suspect]
     Active Substance: SOMATROPIN
     Indication: Growth hormone deficiency
     Dosage: UNK (SOLUTION IN CATRIDGE)
     Route: 058
     Dates: start: 202208, end: 202211
  2. IRON [Concomitant]
     Active Substance: IRON
     Indication: Anaemia
     Dosage: 5 CM, QD
     Route: 048
     Dates: start: 202208, end: 202208
  3. VIDROP [Concomitant]
     Indication: Product used for unknown indication
     Dosage: 1 CM, QD
     Route: 048
     Dates: start: 200208, end: 202208

REACTIONS (4)
  - Gait inability [Recovering/Resolving]
  - Arthralgia [Recovering/Resolving]
  - Pain in extremity [Not Recovered/Not Resolved]
  - Wrong technique in device usage process [Unknown]

NARRATIVE: CASE EVENT DATE: 20221101
